FAERS Safety Report 13068174 (Version 2)
Quarter: 2017Q1

REPORT INFORMATION
  Report Type: Spontaneous
  Country: GB (occurrence: GB)
  Receive Date: 20161228
  Receipt Date: 20170103
  Transmission Date: 20170428
  Serious: Yes (Hospitalization, Other)
  Sender: FDA-Public Use
  Company Number: GB-MYLANLABS-2016M1057455

PATIENT

DRUGS (1)
  1. CLOZARIL [Suspect]
     Active Substance: CLOZAPINE
     Indication: SCHIZOPHRENIA
     Dosage: UNK
     Route: 048
     Dates: start: 20050616

REACTIONS (5)
  - Schizophrenia [Unknown]
  - Suicide attempt [Unknown]
  - Thermal burn [Recovering/Resolving]
  - Treatment noncompliance [Unknown]
  - Infection [Unknown]

NARRATIVE: CASE EVENT DATE: 2016
